FAERS Safety Report 8268834-3 (Version None)
Quarter: 2012Q2

REPORT INFORMATION
  Report Type: 
  Country: None (occurrence: None)
  Receive Date: 20120409
  Receipt Date: 20120409
  Transmission Date: 20120825
  Serious: Yes (Disabling)
  Sender: FDA-Public Use
  Company Number: None

PATIENT

DRUGS (1)
  1. CEFEPIME [Suspect]
     Indication: CONVULSION
     Dosage: 2G
     Route: 042
     Dates: start: 20120330, end: 20120401

REACTIONS (1)
  - CONVULSION [None]
